FAERS Safety Report 7598312-6 (Version None)
Quarter: 2011Q3

REPORT INFORMATION
  Report Type: 
  Country: None (occurrence: None)
  Receive Date: 20110708
  Receipt Date: 20110627
  Transmission Date: 20111222
  Serious: Yes (Hospitalization)
  Sender: FDA-Public Use
  Company Number: US-ELI_LILLY_AND_COMPANY-US201103004460

PATIENT
  Sex: Female

DRUGS (12)
  1. FORTEO [Suspect]
     Indication: OSTEOPOROSIS
     Dosage: 20 UG, QD
     Dates: start: 20110101, end: 20110515
  2. LYRICA [Concomitant]
  3. METFORMIN HCL [Concomitant]
  4. NASONEX [Concomitant]
  5. FENTANYL [Concomitant]
  6. FORTEO [Suspect]
     Dosage: 20 UG, QD
     Dates: start: 20110609
  7. OXYCODONE HCL [Concomitant]
     Dosage: UNK, PRN
  8. SIMVASTATIN [Concomitant]
  9. VITAMIN D [Concomitant]
  10. CALCIUM CARBONATE [Concomitant]
  11. MORPHINE [Concomitant]
  12. FISH OIL [Concomitant]

REACTIONS (6)
  - NAUSEA [None]
  - CONFUSIONAL STATE [None]
  - BLOOD CALCIUM INCREASED [None]
  - VOMITING [None]
  - ANXIETY [None]
  - DRUG DEPENDENCE [None]
